FAERS Safety Report 9316334 (Version 4)
Quarter: 2013Q1

REPORT INFORMATION
  Report Type: Spontaneous
  Country: TR (occurrence: None)
  Receive Date: 20121205
  Receipt Date: 20121219
  Transmission Date: 20140127
  Serious: Yes (Other)
  Sender: FDA-Public Use
  Company Number: TR-2012-3892

PATIENT
  Age: 62 Year
  Sex: Male
  Weight: 60 kg

DRUGS (4)
  1. NAVELBINE (VINORELBINE TARTRATE) INFUSION [Suspect]
     Indication: LUNG CANCER METASTATIC
     Dosage: D1D8 EVERY 21D
     Route: 042
     Dates: start: 20120913, end: 20121106
  2. ALOXI (PALONOSETRON HYDROCHLORIDE) [Concomitant]
  3. DEKORT (DEXAMETHASONE) [Concomitant]
  4. RANITAB (RANITIDINE) [Concomitant]

REACTIONS (4)
  - Malaise [None]
  - Wheezing [None]
  - Dyspnoea [None]
  - Malaise [None]
